FAERS Safety Report 13306637 (Version 1)
Quarter: 2017Q1

REPORT INFORMATION
  Report Type: Spontaneous
  Country: US (occurrence: US)
  Receive Date: 20170308
  Receipt Date: 20170308
  Transmission Date: 20170428
  Serious: No
  Sender: FDA-Public Use
  Company Number: US-AKORN PHARMACEUTICALS-2016AKN00818

PATIENT
  Sex: Female

DRUGS (2)
  1. MONISTAT [Concomitant]
     Active Substance: MICONAZOLE NITRATE
     Indication: ANGULAR CHEILITIS
  2. MYORISAN [Suspect]
     Active Substance: ISOTRETINOIN
     Indication: ACNE
     Dosage: 40 MG, 2X/DAY
     Dates: start: 20161003, end: 20161108

REACTIONS (1)
  - Drug effect delayed [Unknown]

NARRATIVE: CASE EVENT DATE: 2016
